FAERS Safety Report 18758464 (Version 2)
Quarter: 2021Q2

REPORT INFORMATION
  Report Type: Report from Study
  Country: US (occurrence: US)
  Receive Date: 20210119
  Receipt Date: 20210609
  Transmission Date: 20210717
  Serious: Yes (Death, Hospitalization, Other)
  Sender: FDA-Public Use
  Company Number: US-OTSUKA-2020_027722AA

PATIENT
  Age: 72 Year
  Sex: Female
  Weight: 136.05 kg

DRUGS (2)
  1. ASTX727 [Suspect]
     Active Substance: CEDAZURIDINE\DECITABINE
     Indication: MYELODYSPLASTIC SYNDROME
     Dosage: 135 MG, QD (1?5 OF EACH 28 DAYS CYCLE)
     Route: 048
     Dates: start: 20201021
  2. ASTX727 [Suspect]
     Active Substance: CEDAZURIDINE\DECITABINE
     Indication: B-CELL LYMPHOMA STAGE I

REACTIONS (13)
  - Rib fracture [Unknown]
  - Fall [Unknown]
  - Contusion [Unknown]
  - Product dose omission issue [Unknown]
  - Asthenia [Unknown]
  - Death [Fatal]
  - Red blood cell count decreased [Unknown]
  - Pyrexia [Unknown]
  - Fluid retention [Unknown]
  - White blood cell count decreased [Unknown]
  - Nausea [Unknown]
  - Fatigue [Unknown]
  - Cardiac pacemaker insertion [Unknown]

NARRATIVE: CASE EVENT DATE: 202101
